FAERS Safety Report 22356087 (Version 1)
Quarter: 2023Q2

REPORT INFORMATION
  Report Type: Spontaneous
  Country: US (occurrence: US)
  Receive Date: 20230523
  Receipt Date: 20230523
  Transmission Date: 20230722
  Serious: No
  Sender: FDA-Public Use
  Company Number: US-SA-2023SA152887

PATIENT
  Sex: Male

DRUGS (1)
  1. DUPIXENT [Suspect]
     Active Substance: DUPILUMAB
     Dosage: 300 MG, FREQUENCY:OTHER
     Route: 058

REACTIONS (6)
  - Tinnitus [Unknown]
  - Feeling abnormal [Unknown]
  - Cold sweat [Unknown]
  - Headache [Unknown]
  - Pallor [Not Recovered/Not Resolved]
  - Hypoacusis [Unknown]
